FAERS Safety Report 25351972 (Version 1)
Quarter: 2025Q2

REPORT INFORMATION
  Report Type: Spontaneous
  Country: US (occurrence: None)
  Receive Date: 20250522
  Receipt Date: 20250522
  Transmission Date: 20250716
  Serious: Yes (Hospitalization)
  Sender: FDA-CTU
  Company Number: None

PATIENT
  Age: 6 Week
  Sex: Female

DRUGS (4)
  1. BUPRENORPHINE AND NALOXONE SUBLINGUAL FILM [Suspect]
     Active Substance: BUPRENORPHINE HYDROCHLORIDE\NALOXONE HYDROCHLORIDE
     Indication: Drug withdrawal syndrome
     Dosage: OTHER QUANTITY : 1 FILM;?FREQUENCY : EVERY 6 HOURS;?
     Route: 060
     Dates: start: 20250515, end: 20250515
  2. PROZAC [Concomitant]
     Active Substance: FLUOXETINE HYDROCHLORIDE
  3. ABILIFY [Concomitant]
     Active Substance: ARIPIPRAZOLE
  4. XANAX [Concomitant]
     Active Substance: ALPRAZOLAM

REACTIONS (11)
  - Hallucination [None]
  - Heart rate increased [None]
  - Presyncope [None]
  - Confusional state [None]
  - Nausea [None]
  - Vomiting [None]
  - Diarrhoea [None]
  - Hyperventilation [None]
  - Rhinorrhoea [None]
  - Pruritus [None]
  - Lacrimation increased [None]

NARRATIVE: CASE EVENT DATE: 20250515
